FAERS Safety Report 22211335 (Version 1)
Quarter: 2023Q2

REPORT INFORMATION
  Report Type: Spontaneous
  Country: US (occurrence: None)
  Receive Date: 20230413
  Receipt Date: 20230413
  Transmission Date: 20230722
  Serious: Yes (Other)
  Sender: FDA-Public Use
  Company Number: None

PATIENT
  Age: 37 Year
  Sex: Female

DRUGS (2)
  1. AJOVY [Suspect]
     Active Substance: FREMANEZUMAB-VFRM
  2. TIZANIDINE [Suspect]
     Active Substance: TIZANIDINE

REACTIONS (3)
  - Dizziness [None]
  - Blood pressure decreased [None]
  - Somnolence [None]
